FAERS Safety Report 6342164-9 (Version None)
Quarter: 2009Q3

REPORT INFORMATION
  Report Type: 
  Country: None (occurrence: None)
  Receive Date: 20090904
  Receipt Date: 20090904
  Transmission Date: 20100115
  Serious: No
  Sender: FDA-Public Use
  Company Number: None

PATIENT
  Age: 75 Year
  Sex: Male
  Weight: 52.1 kg

DRUGS (14)
  1. REMICADE [Suspect]
     Indication: CROHN'S DISEASE
     Dosage: IV
     Route: 042
     Dates: start: 20090720, end: 20090720
  2. CREON [Concomitant]
  3. PREDNISONE TAB [Concomitant]
  4. LISINOPRIL [Concomitant]
  5. FOLATE [Concomitant]
  6. M.V.I. [Concomitant]
  7. ASPIRIN [Concomitant]
  8. VITD [Concomitant]
  9. APAP TAB [Concomitant]
  10. VIGAMOX [Concomitant]
  11. ATROPINE [Concomitant]
  12. COMBIGAN [Concomitant]
  13. TRAVATAN [Concomitant]
  14. AZOPT [Concomitant]

REACTIONS (2)
  - BLINDNESS UNILATERAL [None]
  - PANOPHTHALMITIS [None]
